FAERS Safety Report 14330772 (Version 1)
Quarter: 2017Q4

REPORT INFORMATION
  Report Type: Spontaneous
  Country: FI (occurrence: FI)
  Receive Date: 20171228
  Receipt Date: 20171228
  Transmission Date: 20180321
  Serious: Yes (Hospitalization)
  Sender: FDA-Public Use
  Company Number: FI-ROCHE-2046277

PATIENT
  Age: 78 Year
  Sex: Female

DRUGS (6)
  1. CARDACE (FINLAND) [Concomitant]
     Route: 065
  2. AVASTIN [Suspect]
     Active Substance: BEVACIZUMAB
     Indication: FALLOPIAN TUBE CANCER
     Route: 042
     Dates: start: 20161005, end: 20171207
  3. VOLTAREN [Concomitant]
     Active Substance: DICLOFENAC SODIUM
     Route: 065
  4. LOSATRIX [Concomitant]
     Active Substance: LOSARTAN POTASSIUM
     Route: 065
  5. PANADOL [Concomitant]
     Active Substance: ACETAMINOPHEN
     Route: 065
  6. PRIMASPAN [Concomitant]
     Active Substance: ASPIRIN
     Route: 065

REACTIONS (1)
  - Ureteric injury [Unknown]

NARRATIVE: CASE EVENT DATE: 20171216
